FAERS Safety Report 20625240 (Version 1)
Quarter: 2022Q1

REPORT INFORMATION
  Report Type: Other
  Country: AR (occurrence: AR)
  Receive Date: 20220323
  Receipt Date: 20220323
  Transmission Date: 20220423
  Serious: Yes (Hospitalization)
  Sender: FDA-Public Use
  Company Number: AR-002147023-NVSC2022AR058411

PATIENT
  Age: 74 Year
  Sex: Male

DRUGS (1)
  1. XOLAIR [Suspect]
     Active Substance: OMALIZUMAB
     Indication: Urticaria chronic
     Dosage: 300 MG, QMO
     Route: 058
     Dates: start: 20210920

REACTIONS (3)
  - Arterial rupture [Unknown]
  - Haemorrhage [Unknown]
  - Animal bite [Unknown]
